FAERS Safety Report 18339780 (Version 1)
Quarter: 2020Q4

REPORT INFORMATION
  Report Type: Spontaneous
  Country: DE (occurrence: DE)
  Receive Date: 20201002
  Receipt Date: 20201002
  Transmission Date: 20210113
  Serious: Yes (Hospitalization, Other)
  Sender: FDA-Public Use
  Company Number: DE-BRISTOL-MYERS SQUIBB COMPANY-BMS-2020-075904

PATIENT
  Age: 83 Year
  Sex: Male

DRUGS (1)
  1. ELIQUIS [Suspect]
     Active Substance: APIXABAN
     Indication: CEREBROVASCULAR ACCIDENT PROPHYLAXIS
     Dosage: 5 MILLIGRAM, BID
     Route: 065

REACTIONS (19)
  - Proctitis [Unknown]
  - Anal haemorrhage [Unknown]
  - Reaction to excipient [Unknown]
  - Hypersensitivity [Unknown]
  - Toxicity to various agents [Unknown]
  - Swollen tongue [Unknown]
  - Haematochezia [Recovered/Resolved]
  - Dizziness [Unknown]
  - Lip swelling [Unknown]
  - Abdominal discomfort [Unknown]
  - Dysgeusia [Unknown]
  - Asthenia [Unknown]
  - Pharyngeal swelling [Unknown]
  - Rectal tenesmus [Unknown]
  - Headache [Unknown]
  - Fatigue [Unknown]
  - Overdose [Unknown]
  - Mucosal disorder [Unknown]
  - Diarrhoea [Unknown]

NARRATIVE: CASE EVENT DATE: 202005
